FAERS Safety Report 7145352-7 (Version None)
Quarter: 2010Q4

REPORT INFORMATION
  Report Type: 
  Country: None (occurrence: None)
  Receive Date: 20101208
  Receipt Date: 20101129
  Transmission Date: 20110411
  Serious: No
  Sender: FDA-Public Use
  Company Number: US-ROXANE LABORATORIES, INC.-2010-RO-01587RO

PATIENT
  Age: 79 Year
  Sex: Male

DRUGS (3)
  1. FLUTICASONE PROPIONATE [Suspect]
     Indication: SINUSITIS
     Route: 045
     Dates: start: 20101122, end: 20101125
  2. FLUTICASONE PROPIONATE [Suspect]
     Indication: HYPERSENSITIVITY
  3. AZITHROMYCIN [Concomitant]
     Indication: SINUSITIS

REACTIONS (1)
  - EPISTAXIS [None]
